FAERS Safety Report 17241278 (Version 1)
Quarter: 2020Q1

REPORT INFORMATION
  Report Type: Spontaneous
  Country: FR (occurrence: FR)
  Receive Date: 20200107
  Receipt Date: 20200107
  Transmission Date: 20200409
  Serious: Yes (Hospitalization)
  Sender: FDA-Public Use
  Company Number: FR-ACCORD-168639

PATIENT
  Age: 80 Year
  Sex: Male
  Weight: 77 kg

DRUGS (17)
  1. ETOPOSIDE. [Suspect]
     Active Substance: ETOPOSIDE
     Indication: SMALL CELL LUNG CANCER METASTATIC
     Dosage: 4 CURES
     Route: 041
     Dates: start: 20190710, end: 20191003
  2. TAHOR [Concomitant]
     Active Substance: ATORVASTATIN CALCIUM
  3. METFORMIN [Concomitant]
     Active Substance: METFORMIN HYDROCHLORIDE
  4. METOCLOPRAMIDE. [Concomitant]
     Active Substance: METOCLOPRAMIDE
  5. EUPRESSYL [Concomitant]
     Active Substance: URAPIDIL
  6. INNOHEP [Concomitant]
     Active Substance: TINZAPARIN SODIUM
  7. PERINDOPRIL [Concomitant]
     Active Substance: PERINDOPRIL
  8. CARBOPLATIN. [Suspect]
     Active Substance: CARBOPLATIN
     Indication: SMALL CELL LUNG CANCER METASTATIC
     Route: 041
     Dates: start: 20190710, end: 20191003
  9. LEVEMER [Concomitant]
  10. XGEVA [Suspect]
     Active Substance: DENOSUMAB
     Indication: ONCOLOGIC COMPLICATION
     Route: 058
     Dates: start: 201907
  11. ISOPTINE [Concomitant]
     Active Substance: VERAPAMIL HYDROCHLORIDE
  12. IPRATROPIUM [Concomitant]
     Active Substance: IPRATROPIUM
  13. ATORVASTATIN/ATORVASTATIN CALCIUM [Concomitant]
     Active Substance: ATORVASTATIN CALCIUM
  14. TECENTRIQ [Suspect]
     Active Substance: ATEZOLIZUMAB
     Indication: SMALL CELL LUNG CANCER METASTATIC
     Dosage: 4 CURES, STRENGTH: 1200 MG
     Route: 041
     Dates: start: 20190710, end: 20191003
  15. BINOCRIT [Concomitant]
     Active Substance: ERYTHROPOIETIN
  16. KARDEGIC [Concomitant]
     Active Substance: ASPIRIN DL-LYSINE
  17. PANTOPRAZOLE [Concomitant]
     Active Substance: PANTOPRAZOLE

REACTIONS (4)
  - Bacteraemia [Recovered/Resolved]
  - Hypocalcaemia [Recovering/Resolving]
  - Keratitis [Recovered/Resolved]
  - Febrile bone marrow aplasia [Recovered/Resolved]

NARRATIVE: CASE EVENT DATE: 20190718
